FAERS Safety Report 22038964 (Version 1)
Quarter: 2023Q1

REPORT INFORMATION
  Report Type: Spontaneous
  Country: US (occurrence: US)
  Receive Date: 20230227
  Receipt Date: 20230227
  Transmission Date: 20230418
  Serious: Yes (Hospitalization, Other)
  Sender: FDA-Public Use
  Company Number: US-SA-SAC20230223000160

PATIENT
  Age: 62 Year
  Sex: Male

DRUGS (12)
  1. TAXOTERE [Suspect]
     Active Substance: DOCETAXEL
     Indication: Non-small cell lung cancer metastatic
     Dosage: 161 MG (ON DAY 5 EVERY 21 DAYS)
     Route: 042
     Dates: start: 20230203
  2. OBINUTUZUMAB [Suspect]
     Active Substance: OBINUTUZUMAB
     Indication: Non-small cell lung cancer metastatic
     Dosage: 1000 MG
     Route: 042
     Dates: start: 20230117
  3. NAPTUMOMAB ESTAFENATOX [Suspect]
     Active Substance: NAPTUMOMAB ESTAFENATOX
     Indication: Non-small cell lung cancer metastatic
     Dosage: 892 UG, Q3W
     Route: 042
     Dates: start: 20230130
  4. ELIQUIS [Concomitant]
     Active Substance: APIXABAN
     Indication: Deep vein thrombosis
     Dosage: 2.5 MG, BID
     Route: 048
     Dates: start: 202208
  5. TRELEGY ELLIPTA [Concomitant]
     Active Substance: FLUTICASONE FUROATE\UMECLIDINIUM BROMIDE\VILANTEROL TRIFENATATE
     Indication: Cough
     Dosage: UNK UNK, QD
     Route: 055
     Dates: start: 201708
  6. TRELEGY ELLIPTA [Concomitant]
     Active Substance: FLUTICASONE FUROATE\UMECLIDINIUM BROMIDE\VILANTEROL TRIFENATATE
     Indication: Lung neoplasm malignant
  7. LEVOTHYROXINE [Concomitant]
     Active Substance: LEVOTHYROXINE
     Indication: Hypothyroidism
     Dosage: 112 UG, QD
     Route: 048
     Dates: start: 201708
  8. ALBUTEROL\IPRATROPIUM [Concomitant]
     Active Substance: ALBUTEROL\IPRATROPIUM
     Indication: Cough
     Dosage: 3 ML, PRN
     Route: 055
     Dates: start: 201708
  9. ALBUTEROL\IPRATROPIUM [Concomitant]
     Active Substance: ALBUTEROL\IPRATROPIUM
     Indication: Lung neoplasm malignant
  10. MORPHINE HAMELN [Concomitant]
     Indication: Cough
     Dosage: 15 MG, PRN
     Route: 048
     Dates: start: 202201
  11. MORPHINE HAMELN [Concomitant]
     Indication: Lung neoplasm malignant
  12. NEURONTIN [Concomitant]
     Active Substance: GABAPENTIN
     Indication: Neuropathy peripheral
     Dosage: 300 MG, HS
     Route: 048
     Dates: start: 202208

REACTIONS (2)
  - Febrile neutropenia [Unknown]
  - Abdominal pain [Unknown]

NARRATIVE: CASE EVENT DATE: 20230209
